FAERS Safety Report 9409619 (Version 1)
Quarter: 2013Q3

REPORT INFORMATION
  Report Type: Spontaneous
  Country: DK (occurrence: DK)
  Receive Date: 20130719
  Receipt Date: 20130719
  Transmission Date: 20140515
  Serious: Yes (Other)
  Sender: FDA-Public Use
  Company Number: PHHY2013DK075366

PATIENT
  Age: 61 Year
  Sex: Female

DRUGS (1)
  1. ZOMETA [Suspect]
     Indication: METASTASES TO BONE
     Dosage: 4 MG/ 100 ML, UNK
     Route: 042
     Dates: start: 2010, end: 2011

REACTIONS (1)
  - Osteonecrosis of jaw [Not Recovered/Not Resolved]
